FAERS Safety Report 9489415 (Version 3)
Quarter: 2013Q3

REPORT INFORMATION
  Report Type: Spontaneous
  Country: US (occurrence: US)
  Receive Date: 20130725
  Receipt Date: 20130920
  Transmission Date: 20140515
  Serious: Yes (Hospitalization)
  Sender: FDA-Public Use
  Company Number: US-GLAXOSMITHKLINE-A1001564A

PATIENT
  Age: 59 Year
  Sex: Female

DRUGS (1)
  1. AVANDIA [Suspect]
     Indication: DIABETES MELLITUS
     Dosage: 4MG PER DAY
     Route: 048
     Dates: start: 20000624, end: 20050725

REACTIONS (6)
  - Coronary artery disease [Not Recovered/Not Resolved]
  - Myocardial infarction [Unknown]
  - Cardiac failure congestive [Unknown]
  - Vascular graft [Unknown]
  - Dyspnoea [Unknown]
  - Fatigue [Unknown]
